FAERS Safety Report 12701436 (Version 3)
Quarter: 2016Q4

REPORT INFORMATION
  Report Type: Spontaneous
  Country: US (occurrence: US)
  Receive Date: 20160831
  Receipt Date: 20161018
  Transmission Date: 20170207
  Serious: Yes (Hospitalization)
  Sender: FDA-Public Use
  Company Number: US-PFIZER INC-2016407301

PATIENT
  Age: 61 Year
  Sex: Female
  Weight: 64 kg

DRUGS (5)
  1. ADVIL [Suspect]
     Active Substance: IBUPROFEN
     Indication: ANTIINFLAMMATORY THERAPY
     Dosage: 200 MG, UNK
     Dates: start: 201607, end: 20160826
  2. TRAMADOL. [Concomitant]
     Active Substance: TRAMADOL
     Dosage: UNK
  3. ADVIL [Suspect]
     Active Substance: IBUPROFEN
     Indication: PAIN
  4. ADVIL [Suspect]
     Active Substance: IBUPROFEN
     Indication: ANTIINFLAMMATORY THERAPY
     Dosage: 50 MG, UNK
     Dates: start: 201608, end: 2016
  5. ADVIL [Suspect]
     Active Substance: IBUPROFEN
     Indication: PAIN

REACTIONS (4)
  - Nausea [Recovered/Resolved]
  - Regurgitation [Recovered/Resolved]
  - Vomiting [Recovered/Resolved]
  - Malaise [Recovered/Resolved]

NARRATIVE: CASE EVENT DATE: 2016
